FAERS Safety Report 8221744-X (Version None)
Quarter: 2012Q1

REPORT INFORMATION
  Report Type: 
  Country: None (occurrence: None)
  Receive Date: 20120320
  Receipt Date: 20120320
  Transmission Date: 20120608
  Serious: Yes (Life-Threatening, Hospitalization, Other)
  Sender: FDA-Public Use
  Company Number: None

PATIENT
  Age: 78 Year
  Sex: Female
  Weight: 61.3 kg

DRUGS (1)
  1. INVANZ [Suspect]
     Indication: INFECTION
     Dates: start: 20120301, end: 20120306

REACTIONS (7)
  - UNRESPONSIVE TO STIMULI [None]
  - DELIRIUM [None]
  - CONVULSION [None]
  - NYSTAGMUS [None]
  - HALLUCINATION, VISUAL [None]
  - ELECTROENCEPHALOGRAM ABNORMAL [None]
  - CONFUSIONAL STATE [None]
